FAERS Safety Report 10072237 (Version 2)
Quarter: 2014Q2

REPORT INFORMATION
  Report Type: Spontaneous
  Country: US (occurrence: US)
  Receive Date: 20140411
  Receipt Date: 20140507
  Transmission Date: 20141212
  Serious: No
  Sender: FDA-Public Use
  Company Number: US-009507513-1404USA003117

PATIENT
  Sex: Female
  Weight: 52.15 kg

DRUGS (2)
  1. NASONEX [Suspect]
     Indication: HYPERSENSITIVITY
     Dosage: ONE SPRAY IN EACH NOSTRIL, QD
     Route: 045
     Dates: start: 2013
  2. NORVASC [Concomitant]

REACTIONS (4)
  - Hypersensitivity [Recovered/Resolved]
  - Drug dose omission [Unknown]
  - Product quality issue [Unknown]
  - Adverse event [Unknown]
